FAERS Safety Report 9330060 (Version 1)
Quarter: 2013Q2

REPORT INFORMATION
  Report Type: Spontaneous
  Country: DE (occurrence: DE)
  Receive Date: 20130604
  Receipt Date: 20130604
  Transmission Date: 20140414
  Serious: Yes (Hospitalization, Disabling)
  Sender: FDA-Public Use
  Company Number: DE-GILEAD-2013-0076340

PATIENT
  Age: 82 Year
  Sex: Male

DRUGS (6)
  1. RANOLAZINE [Suspect]
     Indication: ANGINA PECTORIS
     Dosage: 375 MG, BID
     Route: 048
     Dates: start: 20130503, end: 20130505
  2. ASS TAD PROTECT [Concomitant]
     Indication: CORONARY ARTERY DISEASE
     Dosage: 100 MG, QD
  3. APROVEL [Concomitant]
     Indication: HYPERTENSION
     Dosage: 300 MG, QD
  4. HCT [Concomitant]
     Indication: HYPERTENSION
     Dosage: 12.5 MG, QD
  5. OMEPRAZOL                          /00661201/ [Concomitant]
     Dosage: 20 MG, QD
  6. INSULIN [Concomitant]
     Indication: DIABETES MELLITUS

REACTIONS (1)
  - Cerebrovascular accident [Unknown]
